FAERS Safety Report 7266538-7 (Version None)
Quarter: 2011Q1

REPORT INFORMATION
  Report Type: 
  Country: None (occurrence: None)
  Receive Date: 20110131
  Receipt Date: 20100205
  Transmission Date: 20110831
  Serious: No
  Sender: FDA-Public Use
  Company Number: US-ABBOTT-10P-163-0624639-00

PATIENT
  Sex: Male
  Weight: 98.972 kg

DRUGS (1)
  1. HUMIRA [Suspect]
     Indication: COLITIS ULCERATIVE
     Dates: start: 20091106

REACTIONS (8)
  - INJECTION SITE PAIN [None]
  - HYPOPHAGIA [None]
  - INJECTION SITE SWELLING [None]
  - MUSCLE SPASMS [None]
  - RECTAL HAEMORRHAGE [None]
  - INJECTION SITE ERYTHEMA [None]
  - INJECTION SITE RASH [None]
  - GENITOURINARY TRACT INFECTION [None]
